FAERS Safety Report 6574551-8 (Version None)
Quarter: 2010Q1

REPORT INFORMATION
  Report Type: 
  Country: None (occurrence: None)
  Receive Date: 20100209
  Receipt Date: 20090902
  Transmission Date: 20100710
  Serious: No
  Sender: FDA-Public Use
  Company Number: A0805676A

PATIENT
  Age: 37 Year
  Sex: Male

DRUGS (3)
  1. PAROXETINE HCL [Suspect]
     Dosage: 25MG PER DAY
     Route: 048
     Dates: start: 20090701
  2. NO CONCURRENT MEDICATION [Concomitant]
  3. PAXIL CR [Concomitant]
     Route: 048
     Dates: start: 20010101, end: 20090701

REACTIONS (4)
  - ABNORMAL BEHAVIOUR [None]
  - ANXIETY [None]
  - DRUG INEFFECTIVE [None]
  - MENTAL IMPAIRMENT [None]
